FAERS Safety Report 8162505-X (Version None)
Quarter: 2012Q1

REPORT INFORMATION
  Report Type: 
  Country: None (occurrence: None)
  Receive Date: 20120224
  Receipt Date: 20120224
  Transmission Date: 20120608
  Serious: Yes (Other)
  Sender: FDA-Public Use
  Company Number: None

PATIENT
  Age: 56 Year
  Sex: Female
  Weight: 76.657 kg

DRUGS (2)
  1. MELOXICAM [Suspect]
     Indication: PAIN
     Dosage: 15 MG
     Route: 048
     Dates: start: 20070101, end: 20120214
  2. MELOXICAM [Suspect]
     Indication: OSTEOARTHRITIS
     Dosage: 15 MG
     Route: 048
     Dates: start: 20070101, end: 20120214

REACTIONS (5)
  - HYPOACUSIS [None]
  - EAR DISORDER [None]
  - FEELING ABNORMAL [None]
  - PALPITATIONS [None]
  - DYSPNOEA [None]
